FAERS Safety Report 8266654-7 (Version None)
Quarter: 2012Q2

REPORT INFORMATION
  Report Type: 
  Country: None (occurrence: None)
  Receive Date: 20120407
  Receipt Date: 20120402
  Transmission Date: 20120825
  Serious: Yes (Other)
  Sender: FDA-Public Use
  Company Number: DE-ASTRAZENECA-2012SE21597

PATIENT
  Age: 10285 Day
  Sex: Female
  Weight: 82 kg

DRUGS (2)
  1. SYMBICORT [Suspect]
     Indication: BRONCHITIS
     Dosage: 160/4.5 MCG 2 PUFFS TWICE A DAY
     Route: 055
     Dates: start: 20120321, end: 20120328
  2. CEFUROXIME [Concomitant]
     Route: 048
     Dates: start: 20120326

REACTIONS (1)
  - AGEUSIA [None]
